FAERS Safety Report 4677210-1 (Version None)
Quarter: 2005Q2

REPORT INFORMATION
  Report Type: 
  Country: None (occurrence: None)
  Receive Date: 20050526
  Receipt Date: 20050526
  Transmission Date: 20051028
  Serious: Yes (Hospitalization, Other)
  Sender: FDA-Public Use
  Company Number: None

PATIENT
  Age: 85 Year
  Sex: Female
  Weight: 64.8644 kg

DRUGS (7)
  1. ENOXAPARIN SODIUM [Suspect]
     Dosage: 50 MCG SQ Q12 H
     Route: 058
     Dates: start: 20050225, end: 20050227
  2. LEVOFLOXACIN [Suspect]
     Indication: BRONCHITIS
     Dosage: 500 MG IV Q 24 H
     Route: 042
     Dates: start: 20050225, end: 20050309
  3. LEVOFLOXACIN [Suspect]
     Indication: LUNG INFECTION
     Dosage: 500 MG IV Q 24 H
     Route: 042
     Dates: start: 20050225, end: 20050309
  4. DIGOXIN [Concomitant]
  5. FUROSEMIDE [Concomitant]
  6. LOPRESSOR [Concomitant]
  7. COREG [Concomitant]

REACTIONS (1)
  - THROMBOCYTOPENIA [None]
